FAERS Safety Report 4720584-3 (Version None)
Quarter: 2005Q3

REPORT INFORMATION
  Report Type: 
  Country: None (occurrence: None)
  Receive Date: 20050719
  Receipt Date: 20050518
  Transmission Date: 20060218
  Serious: Yes (Hospitalization, Other)
  Sender: FDA-Public Use
  Company Number: CHPA2005US01165

PATIENT
  Age: 52 Year
  Sex: Female
  Weight: 50.8 kg

DRUGS (1)
  1. NICOTINE [Suspect]
     Indication: SMOKING CESSATION THERAPY
     Dosage: 14 MG QD TRANSDERMAL
     Route: 062
     Dates: start: 20050412, end: 20050101

REACTIONS (6)
  - BROWN-SEQUARD SYNDROME [None]
  - HYPOAESTHESIA [None]
  - MYELITIS TRANSVERSE [None]
  - PARAESTHESIA [None]
  - PARALYSIS [None]
  - SENSORY DISTURBANCE [None]
